FAERS Safety Report 22814770 (Version 3)
Quarter: 2024Q3

REPORT INFORMATION
  Report Type: Report from Study
  Country: CA (occurrence: CA)
  Receive Date: 20230811
  Receipt Date: 20240709
  Transmission Date: 20241017
  Serious: Yes (Hospitalization)
  Sender: ROCHE
  Company Number: CA-ROCHE-2947477

PATIENT
  Age: 28 Year
  Sex: Female

DRUGS (3)
  1. OCREVUS [Suspect]
     Active Substance: OCRELIZUMAB
     Indication: Relapsing-remitting multiple sclerosis
     Dosage: CONCENTRATE FOR INTRAVENOUS INFUSION?300 MG AT DAY 0 AND 14, THEN 600 MG EVERY 6 MONTH?LAST OCRELIZU
     Route: 042
     Dates: start: 20200723
  2. PENICILLIN [Suspect]
     Active Substance: PENICILLIN
     Indication: Product used for unknown indication
     Route: 065
  3. VITAMIN D3 [Concomitant]
     Active Substance: CHOLECALCIFEROL
     Dosage: LONG TIME?AGO

REACTIONS (8)
  - Hypertension [Recovered/Resolved]
  - Platelet count decreased [Unknown]
  - Nasopharyngitis [Unknown]
  - SARS-CoV-2 test positive [Not Recovered/Not Resolved]
  - Maternal exposure before pregnancy [Unknown]
  - Cough [Not Recovered/Not Resolved]
  - Maternal exposure during breast feeding [Unknown]
  - Drug hypersensitivity [Unknown]

NARRATIVE: CASE EVENT DATE: 20221201
